FAERS Safety Report 11631503 (Version 3)
Quarter: 2015Q4

REPORT INFORMATION
  Report Type: Report from Study
  Country: FR (occurrence: FR)
  Receive Date: 20151015
  Receipt Date: 20151027
  Transmission Date: 20160304
  Serious: Yes (Hospitalization)
  Sender: FDA-Public Use
  Company Number: FR-ROCHE-1644300

PATIENT
  Age: 70 Year
  Sex: Male
  Weight: 72 kg

DRUGS (61)
  1. ZELITREX [Concomitant]
     Active Substance: VALACYCLOVIR HYDROCHLORIDE
     Route: 065
     Dates: start: 20131126, end: 20150923
  2. DAIVOBET [Concomitant]
     Active Substance: BETAMETHASONE DIPROPIONATE\CALCIPOTRIENE
     Route: 065
     Dates: start: 20141021, end: 20141027
  3. EDEX [Concomitant]
     Active Substance: ALPROSTADIL
     Route: 065
     Dates: start: 20150814
  4. PRIMPERAN [Concomitant]
     Active Substance: METOCLOPRAMIDE HYDROCHLORIDE
     Route: 065
     Dates: start: 20150927, end: 20150929
  5. RITUXIMAB [Suspect]
     Active Substance: RITUXIMAB
     Indication: NON-HODGKIN^S LYMPHOMA
     Dosage: LAST DOSE PRIOR TO SAE 29/OCT/2013.
     Route: 042
     Dates: start: 20131029
  6. RITUXIMAB [Suspect]
     Active Substance: RITUXIMAB
     Dosage: LAST DAOSE PRIOR TO SAE 17/AUG/2015.
     Route: 058
     Dates: start: 20150817
  7. ACID FOLIC [Concomitant]
     Route: 065
     Dates: start: 20131028
  8. DISULONE [Concomitant]
     Active Substance: DAPSONE\FERROUS OXALATE
     Route: 065
     Dates: start: 20131223, end: 20140217
  9. PYOSTACINE [Concomitant]
     Active Substance: PRISTINAMYCIN
     Route: 065
     Dates: start: 20140203, end: 20140209
  10. DUPHALAC [Concomitant]
     Active Substance: LACTULOSE
     Dosage: 2 PACKED
     Route: 065
     Dates: start: 20140418, end: 20140428
  11. PARACETAMOL [Concomitant]
     Active Substance: ACETAMINOPHEN
     Route: 065
     Dates: start: 20141025, end: 20150105
  12. RITUXIMAB [Suspect]
     Active Substance: RITUXIMAB
     Dosage: LAST DAOSE PRIOR TO SAE 25/MAY/2014.
     Route: 058
     Dates: start: 20140331
  13. BACTRIM [Concomitant]
     Active Substance: SULFAMETHOXAZOLE\TRIMETHOPRIM
     Dosage: 1 TABX3/ WEEK
     Route: 065
     Dates: start: 20131028, end: 20131130
  14. AERIUS [Concomitant]
     Active Substance: DESLORATADINE
     Route: 065
     Dates: start: 20140101
  15. VIBRAMYCINE [Concomitant]
     Route: 065
     Dates: start: 20131225, end: 20140103
  16. SERETIDE [Concomitant]
     Active Substance: FLUTICASONE FUROATE\SALMETEROL XINAFOATE
     Route: 065
     Dates: start: 20140203, end: 20140205
  17. TRAMADOL. [Concomitant]
     Active Substance: TRAMADOL
     Route: 065
     Dates: start: 20140418, end: 20140428
  18. MAG 2 (FRANCE) [Concomitant]
     Route: 065
     Dates: start: 20140818, end: 20140831
  19. LIQUID NITROGEN [Concomitant]
     Active Substance: NITROGEN
     Route: 065
     Dates: start: 20141021, end: 20141021
  20. MORPHINE [Concomitant]
     Active Substance: MORPHINE
     Route: 065
     Dates: start: 20141205, end: 20141205
  21. NASACORT [Concomitant]
     Active Substance: TRIAMCINOLONE ACETONIDE
     Route: 065
     Dates: start: 20150421, end: 20150422
  22. LEVOFLOXACINE [Concomitant]
     Active Substance: LEVOFLOXACIN
     Route: 065
     Dates: start: 20150928, end: 20151005
  23. ZELITREX [Concomitant]
     Active Substance: VALACYCLOVIR HYDROCHLORIDE
     Route: 065
     Dates: start: 20131028, end: 20131112
  24. TRIATEC (FRANCE) [Concomitant]
     Active Substance: RAMIPRIL
     Route: 065
     Dates: start: 20131126, end: 20140114
  25. TRIATEC (FRANCE) [Concomitant]
     Active Substance: RAMIPRIL
     Route: 065
     Dates: start: 20140121, end: 20140415
  26. PARACETAMOL [Concomitant]
     Active Substance: ACETAMINOPHEN
     Route: 065
     Dates: start: 20140412, end: 20140415
  27. PARACETAMOL [Concomitant]
     Active Substance: ACETAMINOPHEN
     Route: 065
     Dates: start: 20150601
  28. LAROXYL [Concomitant]
     Active Substance: AMITRIPTYLINE
     Route: 065
     Dates: start: 20141207, end: 20141210
  29. SOLUPRED (FRANCE) [Concomitant]
     Active Substance: PREDNISOLONE
     Route: 065
     Dates: start: 20140203, end: 20140205
  30. ZOPHREN [Concomitant]
     Active Substance: ONDANSETRON
     Route: 065
     Dates: start: 20131127, end: 20131130
  31. ZOPHREN [Concomitant]
     Active Substance: ONDANSETRON
     Route: 065
     Dates: start: 20140121, end: 20140122
  32. ROCEPHINE [Concomitant]
     Active Substance: CEFTRIAXONE SODIUM
     Route: 065
     Dates: start: 20131223, end: 20131224
  33. METHYLPREDNISOLONE. [Concomitant]
     Active Substance: METHYLPREDNISOLONE
     Route: 065
     Dates: start: 20131125
  34. CEFOTAXIME [Concomitant]
     Active Substance: CEFOTAXIME SODIUM
     Route: 065
     Dates: start: 20140412, end: 20140417
  35. PARACETAMOL [Concomitant]
     Active Substance: ACETAMINOPHEN
     Route: 065
     Dates: start: 20150511, end: 20150515
  36. GLUCOSE 5% [Concomitant]
     Active Substance: DEXTROSE
     Route: 065
     Dates: start: 20150927, end: 20150929
  37. RHINOMAXIL [Concomitant]
     Active Substance: BECLOMETHASONE DIPROPIONATE
     Route: 065
     Dates: start: 20150706
  38. RITUXIMAB [Suspect]
     Active Substance: RITUXIMAB
     Dosage: LAST DAOSE PRIOR TO SAE 01/SEP/2014.
     Route: 058
     Dates: start: 20140707
  39. RITUXIMAB [Suspect]
     Active Substance: RITUXIMAB
     Dosage: LAST DAOSE PRIOR TO SAE 22/JUN/2015.
     Route: 058
     Dates: start: 20141027
  40. ZOPHREN [Concomitant]
     Active Substance: ONDANSETRON
     Route: 065
     Dates: start: 20131223, end: 20131226
  41. TARGOCID [Concomitant]
     Active Substance: TEICOPLANIN
     Route: 065
     Dates: start: 20131223, end: 20131224
  42. PERFALGAN [Concomitant]
     Active Substance: ACETAMINOPHEN
     Route: 065
     Dates: start: 20150927, end: 20150929
  43. INEXIUM [Concomitant]
     Active Substance: ESOMEPRAZOLE
     Route: 065
     Dates: start: 20131028
  44. ZOPHREN [Concomitant]
     Active Substance: ONDANSETRON
     Route: 065
     Dates: start: 20131125, end: 20131126
  45. DISULONE [Concomitant]
     Active Substance: DAPSONE\FERROUS OXALATE
     Route: 065
     Dates: start: 20140305, end: 20150923
  46. POLARAMINE [Concomitant]
     Active Substance: DEXCHLORPHENIRAMINE MALEATE
     Route: 065
     Dates: start: 20131125
  47. CIPROFLOXACINE [Concomitant]
     Active Substance: CIPROFLOXACIN
     Route: 065
     Dates: start: 20140413, end: 20140417
  48. CEFOTAXIME [Concomitant]
     Active Substance: CEFOTAXIME SODIUM
     Route: 065
     Dates: start: 20150927, end: 20151001
  49. RITUXIMAB [Suspect]
     Active Substance: RITUXIMAB
     Indication: NON-HODGKIN^S LYMPHOMA
     Dosage: LAST DAOSE PRIOR TO SAE 26/FEB/2014.
     Route: 058
     Dates: start: 20131125
  50. ZOPHREN [Concomitant]
     Active Substance: ONDANSETRON
     Route: 065
     Dates: start: 20140226, end: 20140227
  51. POLARAMINE [Concomitant]
     Active Substance: DEXCHLORPHENIRAMINE MALEATE
     Route: 065
     Dates: start: 20131029, end: 20131029
  52. METHYLPREDNISOLONE. [Concomitant]
     Active Substance: METHYLPREDNISOLONE
     Route: 065
     Dates: start: 20131029, end: 20131029
  53. GRANOCYTE [Concomitant]
     Active Substance: LENOGRASTIM
     Route: 065
     Dates: start: 20140413, end: 20140414
  54. APROVEL [Concomitant]
     Active Substance: IRBESARTAN
     Route: 065
     Dates: start: 20140417
  55. MAG 2 (FRANCE) [Concomitant]
     Route: 065
     Dates: start: 20140526, end: 20140625
  56. LYRICA [Concomitant]
     Active Substance: PREGABALIN
     Route: 065
     Dates: start: 20140901
  57. ACUPAN [Concomitant]
     Active Substance: NEFOPAM HYDROCHLORIDE
     Route: 065
     Dates: start: 20141205, end: 20141207
  58. ACUPAN [Concomitant]
     Active Substance: NEFOPAM HYDROCHLORIDE
     Route: 065
     Dates: start: 20150927, end: 20150929
  59. TINZAPARINE SODIQUE [Concomitant]
     Route: 065
     Dates: start: 20141205, end: 20141225
  60. EDEX [Concomitant]
     Active Substance: ALPROSTADIL
     Route: 065
     Dates: start: 20150515, end: 20150521
  61. NASACORT [Concomitant]
     Active Substance: TRIAMCINOLONE ACETONIDE
     Route: 065
     Dates: start: 20150601, end: 20150706

REACTIONS (1)
  - Lung disorder [Recovered/Resolved]

NARRATIVE: CASE EVENT DATE: 20150927
